FAERS Safety Report 10075917 (Version 2)
Quarter: 2014Q3

REPORT INFORMATION
  Report Type: Spontaneous
  Country: US (occurrence: US)
  Receive Date: 20140414
  Receipt Date: 20140709
  Transmission Date: 20150326
  Serious: Yes (Other)
  Sender: FDA-Public Use
  Company Number: US-TEVA-475412USA

PATIENT
  Sex: Female

DRUGS (1)
  1. PAROXETINE [Suspect]
     Active Substance: PAROXETINE\PAROXETINE HYDROCHLORIDE

REACTIONS (5)
  - Coeliac disease [Unknown]
  - Depression [Unknown]
  - Gastrointestinal inflammation [Unknown]
  - Autoimmune thyroiditis [Unknown]
  - Autoimmune disorder [Unknown]
